FAERS Safety Report 5802422-0 (Version None)
Quarter: 2008Q3

REPORT INFORMATION
  Report Type: 
  Country: None (occurrence: None)
  Receive Date: 20080707
  Receipt Date: 20080627
  Transmission Date: 20090109
  Serious: Yes (Other)
  Sender: FDA-Public Use
  Company Number: PHHO2007BE02880

PATIENT
  Sex: Male
  Weight: 70 kg

DRUGS (2)
  1. ZOLEDRONIC ACID [Suspect]
     Indication: METASTASES TO BONE
     Dosage: 4MG EVERY 4 WEEKS
     Route: 042
     Dates: start: 20021115
  2. ANTIBIOTICS [Concomitant]

REACTIONS (3)
  - BONE DISORDER [None]
  - GINGIVAL PAIN [None]
  - OSTEONECROSIS [None]
